FAERS Safety Report 20421258 (Version 1)
Quarter: 2022Q1

REPORT INFORMATION
  Report Type: Spontaneous
  Country: US (occurrence: None)
  Receive Date: 20220203
  Receipt Date: 20220203
  Transmission Date: 20220423
  Serious: Yes (Hospitalization, Disabling)
  Sender: FDA-Public Use
  Company Number: None

PATIENT
  Age: 30 Year
  Sex: Female
  Weight: 63 kg

DRUGS (5)
  1. RISPERDAL [Suspect]
     Active Substance: RISPERIDONE
     Indication: Product used for unknown indication
  2. GABAPENTIN [Concomitant]
     Active Substance: GABAPENTIN
  3. duoloxentine [Concomitant]
  4. naltrexone low dose 4.5mg [Concomitant]
  5. STELARA [Concomitant]
     Active Substance: USTEKINUMAB

REACTIONS (11)
  - Arthralgia [None]
  - Myalgia [None]
  - Arthralgia [None]
  - Burning sensation [None]
  - Arthralgia [None]
  - Neutrophil count increased [None]
  - White blood cell count increased [None]
  - Plantar fasciitis [None]
  - Tendon injury [None]
  - Food allergy [None]
  - Drug hypersensitivity [None]

NARRATIVE: CASE EVENT DATE: 20211222
